APPROVED DRUG PRODUCT: OLOPATADINE HYDROCHLORIDE
Active Ingredient: OLOPATADINE HYDROCHLORIDE
Strength: 0.665MG/SPRAY
Dosage Form/Route: SPRAY, METERED;NASAL
Application: A210901 | Product #001 | TE Code: AB
Applicant: AMNEAL PHARMACEUTICALS LLC
Approved: Jan 28, 2020 | RLD: No | RS: Yes | Type: RX